FAERS Safety Report 5294687-1 (Version None)
Quarter: 2007Q2

REPORT INFORMATION
  Report Type: 
  Country: None (occurrence: None)
  Receive Date: 20070412
  Receipt Date: 20070328
  Transmission Date: 20071010
  Serious: No
  Sender: FDA-Public Use
  Company Number: US-AMGEN-STX214114

PATIENT
  Sex: Female

DRUGS (1)
  1. ENBREL [Suspect]
     Indication: RHEUMATOID ARTHRITIS
     Route: 058
     Dates: start: 20060811

REACTIONS (4)
  - DIZZINESS [None]
  - DYSPHONIA [None]
  - MALAISE [None]
  - NASOPHARYNGITIS [None]
